FAERS Safety Report 6376694-0 (Version None)
Quarter: 2009Q3

REPORT INFORMATION
  Report Type: 
  Country: None (occurrence: None)
  Receive Date: 20090925
  Receipt Date: 20090920
  Transmission Date: 20100115
  Serious: Yes (Hospitalization)
  Sender: FDA-Public Use
  Company Number: PHHO2009BR08217

PATIENT
  Sex: Female
  Weight: 47 kg

DRUGS (1)
  1. STI571/CGP57148B T35717+TAB [Suspect]
     Indication: CHRONIC MYELOID LEUKAEMIA
     Dosage: 800MG
     Route: 048
     Dates: start: 20090527, end: 20090605

REACTIONS (5)
  - CHRONIC MYELOID LEUKAEMIA [None]
  - DISEASE PROGRESSION [None]
  - RASH [None]
  - URINARY TRACT INFECTION [None]
  - WHITE BLOOD CELL COUNT INCREASED [None]
